FAERS Safety Report 9527929 (Version 2)
Quarter: 2014Q1

REPORT INFORMATION
  Report Type: Spontaneous
  Country: IT (occurrence: IT)
  Receive Date: 20130917
  Receipt Date: 20140129
  Transmission Date: 20141002
  Serious: Yes (Hospitalization)
  Sender: FDA-Public Use
  Company Number: IT-ACCORD-019435

PATIENT
  Age: 42 Year
  Sex: Female

DRUGS (3)
  1. TRITTICO [Concomitant]
     Route: 048
  2. EFEXOR [Concomitant]
     Route: 048
     Dates: start: 20130627, end: 20130627
  3. TOPIRAMATE [Suspect]
     Dosage: ABUSIVELY RECEIVED TOPIRAMATE 50 MG TABLETS (TOOK BETWEEN 10-20 TABLETS) FOR SELF INJURIOUS PURPOSE
     Route: 048
     Dates: start: 20130627, end: 20130627

REACTIONS (5)
  - Sedation [Recovered/Resolved]
  - Self injurious behaviour [Recovered/Resolved]
  - Dyskinesia [Recovered/Resolved]
  - Psychomotor skills impaired [Recovered/Resolved]
  - Drug abuse [Unknown]
